FAERS Safety Report 8778494 (Version 2)
Quarter: 2012Q4

REPORT INFORMATION
  Report Type: 
  Country: AT (occurrence: AT)
  Receive Date: 20120912
  Receipt Date: 20120914
  Transmission Date: 20130627
  Serious: Yes (Life-Threatening, Hospitalization)
  Sender: FDA-Public Use
  Company Number: AT-GLAXOSMITHKLINE-B0829739A

PATIENT
  Age: 45 Year
  Sex: Male
  Weight: 45 kg

DRUGS (6)
  1. TROBALT [Suspect]
     Indication: EPILEPSY
     Dosage: 8000MG per day
     Route: 065
  2. ZEBINIX [Concomitant]
     Dosage: 1200MG per day
  3. MIRTAZAPIN [Concomitant]
     Route: 065
  4. RISPERDAL [Concomitant]
     Route: 065
  5. TRAZODONE [Concomitant]
     Dosage: 150MG per day
     Route: 065
  6. KEPPRA [Concomitant]
     Dosage: 500MG per day
     Route: 065

REACTIONS (5)
  - Suicide attempt [Recovering/Resolving]
  - Depression [Unknown]
  - Agitation [Unknown]
  - Poisoning [None]
  - Apparent life threatening event [None]
